FAERS Safety Report 22066613 (Version 1)
Quarter: 2023Q1

REPORT INFORMATION
  Report Type: Spontaneous
  Country: US (occurrence: None)
  Receive Date: 20230306
  Receipt Date: 20230306
  Transmission Date: 20230418
  Serious: Yes (Death)
  Sender: FDA-Public Use
  Company Number: None

PATIENT
  Age: 68 Year
  Sex: Male

DRUGS (10)
  1. ENVARSUS XR [Suspect]
     Active Substance: TACROLIMUS
     Indication: Immunosuppression
     Dates: start: 201704, end: 202302
  2. ALENDRONATE [Concomitant]
     Active Substance: ALENDRONATE SODIUM
  3. PREDNISONE [Concomitant]
  4. OMEPRAZOLE [Concomitant]
     Active Substance: OMEPRAZOLE
  5. VALGANCICLOVIR [Concomitant]
     Active Substance: VALGANCICLOVIR
  6. ACETAMINOPHEN [Concomitant]
  7. MAGNESIUM OXIDE [Concomitant]
     Active Substance: MAGNESIUM OXIDE
  8. FISH OIL [Concomitant]
     Active Substance: FISH OIL
  9. FUROSEMIDE [Concomitant]
     Active Substance: FUROSEMIDE
  10. ITRACONAZOLE [Concomitant]

REACTIONS (1)
  - Death [None]

NARRATIVE: CASE EVENT DATE: 20230211
